FAERS Safety Report 7407456-0 (Version None)
Quarter: 2011Q2

REPORT INFORMATION
  Report Type: 
  Country: None (occurrence: None)
  Receive Date: 20110411
  Receipt Date: 20110401
  Transmission Date: 20111010
  Serious: Yes (Disabling, Other)
  Sender: FDA-Public Use
  Company Number: US-BAYER-2011-026320

PATIENT
  Sex: Female

DRUGS (4)
  1. AVELOX [Suspect]
     Dosage: 400 MG, QD
     Dates: start: 20110227, end: 20110228
  2. FOSAMAX PLUS D [Concomitant]
  3. AVELOX [Suspect]
     Indication: NASOPHARYNGITIS
     Dosage: 400 MG, QD
     Route: 048
     Dates: start: 20110224, end: 20110224
  4. LEVAQUIN [Concomitant]
     Dosage: UNK
     Dates: start: 20110201

REACTIONS (5)
  - ACTIVITIES OF DAILY LIVING IMPAIRED [None]
  - PAIN IN EXTREMITY [None]
  - ARTHRALGIA [None]
  - DIZZINESS [None]
  - MUSCLE TWITCHING [None]
